FAERS Safety Report 8187147-1 (Version None)
Quarter: 2012Q1

REPORT INFORMATION
  Report Type: 
  Country: None (occurrence: None)
  Receive Date: 20120306
  Receipt Date: 20120229
  Transmission Date: 20120608
  Serious: Yes (Hospitalization, Other)
  Sender: FDA-Public Use
  Company Number: US-ACTELION-A-US2011-46626

PATIENT

DRUGS (5)
  1. REVATIO [Concomitant]
  2. TRACLEER [Suspect]
     Indication: PULMONARY ARTERIAL HYPERTENSION
     Dosage: UNK MG, UNK
     Route: 048
     Dates: start: 20101109
  3. OXYGEN [Concomitant]
  4. COUMADIN [Concomitant]
  5. CALCIUM CHANNEL BLOCKERS [Concomitant]

REACTIONS (12)
  - CARDIAC DISORDER [None]
  - FEELING ABNORMAL [None]
  - HEPATIC PAIN [None]
  - FATIGUE [None]
  - WEIGHT DECREASED [None]
  - CARDIAC FAILURE [None]
  - HEPATITIS [None]
  - BILIARY CIRRHOSIS PRIMARY [None]
  - PANCREATITIS [None]
  - LUNG DISORDER [None]
  - LIVER FUNCTION TEST ABNORMAL [None]
  - BLOOD LACTATE DEHYDROGENASE INCREASED [None]
